FAERS Safety Report 25441568 (Version 8)
Quarter: 2025Q4

REPORT INFORMATION
  Report Type: Report from Study
  Country: CA (occurrence: CA)
  Receive Date: 20250616
  Receipt Date: 20251119
  Transmission Date: 20260118
  Serious: Yes (Hospitalization, Other)
  Sender: TAKEDA
  Company Number: CA-TAKEDA-2025TUS024451

PATIENT
  Age: 69 Year
  Sex: Female

DRUGS (9)
  1. VEDOLIZUMAB [Suspect]
     Active Substance: VEDOLIZUMAB
     Indication: Crohn^s disease
     Dosage: 300 MILLIGRAM
  2. VEDOLIZUMAB [Suspect]
     Active Substance: VEDOLIZUMAB
     Dosage: 300 MILLIGRAM
  3. VEDOLIZUMAB [Suspect]
     Active Substance: VEDOLIZUMAB
     Dosage: 300 MILLIGRAM, Q4WEEKS
     Dates: start: 20251103
  4. ENTOCORT [Concomitant]
     Active Substance: BUDESONIDE
     Dosage: UNK
  5. Cortiment [Concomitant]
     Dosage: UNK
  6. POLYETHYLENE GLYCOL 3350 [Concomitant]
     Active Substance: POLYETHYLENE GLYCOL 3350
     Dosage: UNK
  7. VITAMIN D NOS [Concomitant]
     Active Substance: CHOLECALCIFEROL\ERGOCALCIFEROL
     Dosage: UNK
  8. CRESTOR [Concomitant]
     Active Substance: ROSUVASTATIN CALCIUM
     Dosage: UNK
  9. PROLIA [Concomitant]
     Active Substance: DENOSUMAB
     Dosage: UNK

REACTIONS (26)
  - Crohn^s disease [Unknown]
  - Loss of consciousness [Unknown]
  - Spinal fracture [Unknown]
  - Arrhythmia [Unknown]
  - Pneumothorax [Unknown]
  - Anxiety [Unknown]
  - Stress [Unknown]
  - Therapeutic reaction time decreased [Unknown]
  - Abdominal pain lower [Unknown]
  - Cellulitis [Unknown]
  - Off label use [Unknown]
  - Tremor [Unknown]
  - Blood pressure decreased [Unknown]
  - Fall [Unknown]
  - Rib fracture [Unknown]
  - Faeces soft [Unknown]
  - Frequent bowel movements [Unknown]
  - Heart rate increased [Unknown]
  - Dizziness [Unknown]
  - Blood pressure increased [Unknown]
  - Headache [Unknown]
  - Back pain [Unknown]
  - Abdominal discomfort [Unknown]
  - Disturbance in attention [Unknown]
  - Flatulence [Recovering/Resolving]
  - Abdominal distension [Recovering/Resolving]

NARRATIVE: CASE EVENT DATE: 20250305
